FAERS Safety Report 18357584 (Version 1)
Quarter: 2020Q4

REPORT INFORMATION
  Report Type: Report from Study
  Country: None (occurrence: US)
  Receive Date: 20201008
  Receipt Date: 20201008
  Transmission Date: 20210114
  Serious: Yes (Other)
  Sender: FDA-Public Use
  Company Number: US-ABBVIE-18K-163-2498101-00

PATIENT
  Age: 55 Year
  Sex: Male
  Weight: 96.7 kg

DRUGS (10)
  1. OMEPRAZOLE. [Concomitant]
     Active Substance: OMEPRAZOLE
     Indication: GASTROOESOPHAGEAL REFLUX DISEASE
  2. SAXENDA [Concomitant]
     Active Substance: LIRAGLUTIDE
     Indication: INCREASED APPETITE
  3. HUMIRA [Suspect]
     Active Substance: ADALIMUMAB
     Route: 058
     Dates: start: 2016
  4. AMLODIPINE [Concomitant]
     Active Substance: AMLODIPINE BESYLATE
     Indication: HYPERTENSION
  5. DICLOFENAC [Concomitant]
     Active Substance: DICLOFENAC
     Indication: PAIN
  6. ATORVASTATIN [Concomitant]
     Active Substance: ATORVASTATIN
     Indication: BLOOD CHOLESTEROL INCREASED
  7. VITAMIN D3 [Concomitant]
     Active Substance: CHOLECALCIFEROL
     Indication: SUPPLEMENTATION THERAPY
  8. HUMIRA [Suspect]
     Active Substance: ADALIMUMAB
     Indication: ANKYLOSING SPONDYLITIS
     Route: 058
     Dates: start: 2016
  9. PREGABALIN. [Concomitant]
     Active Substance: PREGABALIN
     Indication: NEURALGIA
  10. FLUTICASONE. [Concomitant]
     Active Substance: FLUTICASONE
     Indication: ALLERGIC SINUSITIS

REACTIONS (19)
  - Musculoskeletal disorder [Unknown]
  - Fatigue [Not Recovered/Not Resolved]
  - Osteoarthritis [Recovering/Resolving]
  - Vertebral osteophyte [Recovering/Resolving]
  - Procedural pain [Not Recovered/Not Resolved]
  - Neck pain [Recovering/Resolving]
  - Shoulder arthroplasty [Unknown]
  - Procedural pain [Unknown]
  - Dysstasia [Unknown]
  - Arthralgia [Not Recovered/Not Resolved]
  - Gastrooesophageal reflux disease [Not Recovered/Not Resolved]
  - Muscular weakness [Recovering/Resolving]
  - Sitting disability [Unknown]
  - Temporomandibular joint surgery [Unknown]
  - Pain [Recovering/Resolving]
  - Pain in extremity [Recovering/Resolving]
  - Limb operation [Unknown]
  - Spinal operation [Unknown]
  - Hip arthroplasty [Unknown]

NARRATIVE: CASE EVENT DATE: 2013
